FAERS Safety Report 8013232-0 (Version None)
Quarter: 2011Q4

REPORT INFORMATION
  Report Type: 
  Country: None (occurrence: None)
  Receive Date: 20111229
  Receipt Date: 20111229
  Transmission Date: 20120403
  Serious: Yes (Life-Threatening)
  Sender: FDA-Public Use
  Company Number: None

PATIENT
  Sex: Female

DRUGS (1)
  1. DEXILANT [Suspect]

REACTIONS (11)
  - FEELING ABNORMAL [None]
  - ACNE [None]
  - CHEST PAIN [None]
  - CHEST DISCOMFORT [None]
  - PALPITATIONS [None]
  - ABDOMINAL DISTENSION [None]
  - ALOPECIA [None]
  - DYSPNOEA [None]
  - CONSTIPATION [None]
  - INSOMNIA [None]
  - OXYGEN SATURATION DECREASED [None]
